FAERS Safety Report 8481301 (Version 4)
Quarter: 2012Q4

REPORT INFORMATION
  Report Type: 
  Country: CZ (occurrence: CZ)
  Receive Date: 20120329
  Receipt Date: 20120914
  Transmission Date: 20130627
  Serious: No
  Sender: FDA-Public Use
  Company Number: CZ-AMGEN-CZESP2012018069

PATIENT
  Age: 33 Year
  Sex: Female

DRUGS (3)
  1. ENBREL [Suspect]
     Indication: PSORIATIC ARTHROPATHY
     Dosage: UNK
     Dates: start: 201106
  2. HELICID                            /00661201/ [Concomitant]
     Dosage: UNK
  3. AULIN [Concomitant]
     Dosage: UNK

REACTIONS (1)
  - Paraesthesia [Recovered/Resolved with Sequelae]
